FAERS Safety Report 13752877 (Version 1)
Quarter: 2017Q3

REPORT INFORMATION
  Report Type: Spontaneous
  Country: PK (occurrence: PK)
  Receive Date: 20170714
  Receipt Date: 20170714
  Transmission Date: 20171127
  Serious: Yes (Other)
  Sender: FDA-Public Use
  Company Number: PK-DEPOMED, INC.-PK-2017DEP001367

PATIENT
  Age: 9 Month
  Sex: Female
  Weight: 7 kg

DRUGS (4)
  1. FENTANYL. [Suspect]
     Active Substance: FENTANYL
     Indication: POSTOPERATIVE ANALGESIA
     Dosage: 2 ?G/ML (1 ML/H)
     Route: 008
  2. SEVOFLURANE. [Suspect]
     Active Substance: SEVOFLURANE
     Indication: GENERAL ANAESTHESIA
     Dosage: UNK
     Route: 055
  3. BUPIVACAINE. [Suspect]
     Active Substance: BUPIVACAINE
     Indication: PERIOPERATIVE ANALGESIA
     Dosage: 0.1% (POSTOPERATIVE)
     Route: 008
  4. BUPIVACAINE. [Suspect]
     Active Substance: BUPIVACAINE
     Indication: POSTOPERATIVE ANALGESIA
     Dosage: 0.25% (INTRAOPERATIVE)
     Route: 008

REACTIONS (1)
  - Quadriparesis [Unknown]
